FAERS Safety Report 7806158-6 (Version None)
Quarter: 2011Q4

REPORT INFORMATION
  Report Type: 
  Country: None (occurrence: None)
  Receive Date: 20111007
  Receipt Date: 20111007
  Transmission Date: 20120403
  Serious: No
  Sender: FDA-Public Use
  Company Number: None

PATIENT
  Sex: Male

DRUGS (8)
  1. LEVAQUIN 500MG 504 58.0925.50 [Suspect]
     Indication: CHRONIC OBSTRUCTIVE PULMONARY DISEASE
     Dosage: 50MG DAILY ORALLY
     Route: 048
     Dates: start: 20110410
  2. LEVAQUIN 500MG 504 58.0925.50 [Suspect]
     Indication: LUNG INFECTION
     Dosage: 50MG DAILY ORALLY
     Route: 048
     Dates: start: 20110410
  3. LEVAQUIN 500MG 504 58.0925.50 [Suspect]
     Indication: CHRONIC OBSTRUCTIVE PULMONARY DISEASE
     Dosage: 50MG DAILY ORALLY
     Route: 048
     Dates: start: 20110407
  4. LEVAQUIN 500MG 504 58.0925.50 [Suspect]
     Indication: LUNG INFECTION
     Dosage: 50MG DAILY ORALLY
     Route: 048
     Dates: start: 20110407
  5. LEVAQUIN 500MG 504 58.0925.50 [Suspect]
     Indication: CHRONIC OBSTRUCTIVE PULMONARY DISEASE
     Dosage: 50MG DAILY ORALLY
     Route: 048
     Dates: start: 20110409
  6. LEVAQUIN 500MG 504 58.0925.50 [Suspect]
     Indication: LUNG INFECTION
     Dosage: 50MG DAILY ORALLY
     Route: 048
     Dates: start: 20110409
  7. LEVAQUIN 500MG 504 58.0925.50 [Suspect]
     Indication: CHRONIC OBSTRUCTIVE PULMONARY DISEASE
     Dosage: 50MG DAILY ORALLY
     Route: 048
     Dates: start: 20110408
  8. LEVAQUIN 500MG 504 58.0925.50 [Suspect]
     Indication: LUNG INFECTION
     Dosage: 50MG DAILY ORALLY
     Route: 048
     Dates: start: 20110408

REACTIONS (2)
  - MYALGIA [None]
  - TENDONITIS [None]
